FAERS Safety Report 10369285 (Version 1)
Quarter: 2014Q3

REPORT INFORMATION
  Report Type: Spontaneous
  Country: US (occurrence: US)
  Receive Date: 20140807
  Receipt Date: 20140807
  Transmission Date: 20150326
  Serious: Yes (Hospitalization, Other)
  Sender: FDA-Public Use
  Company Number: US-ABBVIE-14P-163-1265591-00

PATIENT
  Sex: Male
  Weight: 63.56 kg

DRUGS (9)
  1. HUMIRA [Suspect]
     Active Substance: ADALIMUMAB
     Indication: PSORIASIS
     Dates: start: 201309, end: 201309
  2. HUMIRA [Suspect]
     Active Substance: ADALIMUMAB
     Indication: AUTOIMMUNE DISORDER
     Dosage: TWO WEEKS AFTER 80 MG DOSE
     Dates: start: 2013, end: 2013
  3. IBUPROFEN. [Concomitant]
     Active Substance: IBUPROFEN
     Indication: PRODUCT USED FOR UNKNOWN INDICATION
  4. ALBUTEROL. [Concomitant]
     Active Substance: ALBUTEROL
     Indication: ASTHMA
  5. BUDESONIDE. [Concomitant]
     Active Substance: BUDESONIDE
     Indication: ASTHMA
  6. UNNAMED LEUKOTRIENE INHIBITOR [Concomitant]
     Indication: ASTHMA
     Dosage: AT NIGHT
  7. ALEVE [Concomitant]
     Active Substance: NAPROXEN SODIUM
     Indication: PRODUCT USED FOR UNKNOWN INDICATION
  8. CORTICOSTEROID NASAL SPRAY [Concomitant]
     Indication: RHINITIS ALLERGIC
  9. ANTIHISTAMINES [Concomitant]
     Active Substance: ANTIHISTAMINES NOS
     Indication: RHINITIS ALLERGIC

REACTIONS (9)
  - Incorrect product storage [Not Recovered/Not Resolved]
  - Pasteurella infection [Recovered/Resolved]
  - Animal bite [Recovered/Resolved]
  - Arthritis [Not Recovered/Not Resolved]
  - Psoriatic arthropathy [Not Recovered/Not Resolved]
  - Joint effusion [Unknown]
  - Eczema [Unknown]
  - Animal bite [Recovered/Resolved]
  - Osteoarthritis [Not Recovered/Not Resolved]

NARRATIVE: CASE EVENT DATE: 2013
